FAERS Safety Report 6432334-3 (Version None)
Quarter: 2009Q4

REPORT INFORMATION
  Report Type: 
  Country: None (occurrence: None)
  Receive Date: 20091109
  Receipt Date: 20091030
  Transmission Date: 20100525
  Serious: Yes (Other)
  Sender: FDA-Public Use
  Company Number: US-TEVA-212233USA

PATIENT
  Sex: Female
  Weight: 59.02 kg

DRUGS (4)
  1. PLAN B ONE-STEP [Suspect]
     Indication: POST COITAL CONTRACEPTION
     Route: 048
  2. PLAN B ONE-STEP [Suspect]
     Route: 048
  3. PLAN B ONE-STEP [Suspect]
     Route: 048
  4. PLAN B ONE-STEP [Suspect]
     Route: 048
     Dates: start: 20091005, end: 20091005

REACTIONS (14)
  - CHEST DISCOMFORT [None]
  - CRYING [None]
  - DEPRESSION [None]
  - DIZZINESS [None]
  - DYSSTASIA [None]
  - EMOTIONAL DISORDER [None]
  - FATIGUE [None]
  - HEADACHE [None]
  - HYPOAESTHESIA [None]
  - MENSTRUATION IRREGULAR [None]
  - MOOD SWINGS [None]
  - PALPITATIONS [None]
  - STRESS [None]
  - SUICIDAL IDEATION [None]
